FAERS Safety Report 10376897 (Version 2)
Quarter: 2014Q4

REPORT INFORMATION
  Report Type: Report from Study
  Country: JP (occurrence: JP)
  Receive Date: 20140811
  Receipt Date: 20141009
  Transmission Date: 20150528
  Serious: Yes (Hospitalization)
  Sender: FDA-Public Use
  Company Number: JP-ABBVIE-14P-087-1270602-00

PATIENT
  Age: 76 Year
  Sex: Male
  Weight: 55.2 kg

DRUGS (6)
  1. LIPACREON GRANULES 300 MG SACHET [Suspect]
     Active Substance: PANCRELIPASE
     Route: 065
     Dates: start: 20131009
  2. INSULIN HUMAN [Concomitant]
     Active Substance: INSULIN HUMAN
     Indication: GLUCOSE TOLERANCE IMPAIRED
     Dates: start: 20140107, end: 20140122
  3. LANSOPRAZOLE. [Concomitant]
     Active Substance: LANSOPRAZOLE
     Indication: PROPHYLAXIS AGAINST GASTROINTESTINAL ULCER
     Route: 048
  4. URSODEOXYCHOLIC ACID [Concomitant]
     Active Substance: URSODIOL
     Indication: HEPATIC FUNCTION ABNORMAL
     Route: 048
     Dates: start: 20130201, end: 20140117
  5. AMLODIPINE BESILATE [Concomitant]
     Active Substance: AMLODIPINE BESYLATE
     Indication: HYPERTENSION
     Route: 048
     Dates: start: 20140107, end: 20140217
  6. LIPACREON GRANULES 300 MG SACHET [Suspect]
     Active Substance: PANCRELIPASE
     Indication: PANCREATIC INSUFFICIENCY
     Route: 048
     Dates: start: 20130220, end: 20131008

REACTIONS (1)
  - Pancreatic duct stenosis [Recovered/Resolved]

NARRATIVE: CASE EVENT DATE: 20140108
